FAERS Safety Report 10155791 (Version 1)
Quarter: 2014Q2

REPORT INFORMATION
  Report Type: Spontaneous
  Country: JP (occurrence: JP)
  Receive Date: 20140506
  Receipt Date: 20140506
  Transmission Date: 20141212
  Serious: Yes (Hospitalization)
  Sender: FDA-Public Use
  Company Number: JP-ROXANE LABORATORIES, INC.-2014-RO-00695RO

PATIENT
  Age: 68 Year
  Sex: Female

DRUGS (1)
  1. METHOTREXATE [Suspect]
     Indication: RHEUMATOID ARTHRITIS
     Route: 065
     Dates: start: 201205

REACTIONS (1)
  - Epstein-Barr virus associated lymphoma [Recovered/Resolved]
